FAERS Safety Report 10872518 (Version 1)
Quarter: 2015Q1

REPORT INFORMATION
  Report Type: Spontaneous
  Country: US (occurrence: US)
  Receive Date: 20150227
  Receipt Date: 20150227
  Transmission Date: 20150721
  Serious: No
  Sender: FDA-Public Use
  Company Number: US-ASTRAZENECA-2015SE15978

PATIENT
  Age: 714 Month
  Sex: Female
  Weight: 59 kg

DRUGS (1)
  1. ANASTRAZOLE [Suspect]
     Active Substance: ANASTROZOLE
     Indication: ILL-DEFINED DISORDER
     Route: 048
     Dates: start: 20141005

REACTIONS (3)
  - Onychoclasis [Unknown]
  - Alopecia [Unknown]
  - Hair growth abnormal [Unknown]

NARRATIVE: CASE EVENT DATE: 201410
